FAERS Safety Report 25676845 (Version 1)
Quarter: 2025Q3

REPORT INFORMATION
  Report Type: Spontaneous
  Country: EU (occurrence: EU)
  Receive Date: 20250813
  Receipt Date: 20250813
  Transmission Date: 20251020
  Serious: Yes (Life-Threatening, Hospitalization, Other)
  Sender: BRISTOL-MYERS SQUIBB COMPANY
  Company Number: None

PATIENT
  Age: 81 Year
  Sex: Male

DRUGS (2)
  1. OPDIVO [Suspect]
     Active Substance: NIVOLUMAB
     Indication: Sarcomatoid mesothelioma
     Dosage: 360 MG EVERY 21 DAYS
     Route: 042
     Dates: start: 20240219, end: 20250606
  2. YERVOY [Suspect]
     Active Substance: IPILIMUMAB
     Indication: Sarcomatoid mesothelioma
     Dosage: 1 MG/KG EVERY 42 DAYS
     Route: 042
     Dates: start: 20240219, end: 20250606

REACTIONS (8)
  - Adrenal insufficiency [Recovering/Resolving]
  - Immune-mediated hypophysitis [Recovering/Resolving]
  - Atrial fibrillation [Recovered/Resolved]
  - Syncope [Recovering/Resolving]
  - Diarrhoea [Recovering/Resolving]
  - Decreased appetite [Not Recovered/Not Resolved]
  - Dyspepsia [Not Recovered/Not Resolved]
  - Chronic gastritis [Not Recovered/Not Resolved]

NARRATIVE: CASE EVENT DATE: 20250515
